FAERS Safety Report 16196001 (Version 2)
Quarter: 2019Q2

REPORT INFORMATION
  Report Type: Spontaneous
  Country: JP (occurrence: JP)
  Receive Date: 20190415
  Receipt Date: 20190620
  Transmission Date: 20190711
  Serious: Yes (Death, Life-Threatening, Hospitalization, Other)
  Sender: FDA-Public Use
  Company Number: JP-BRISTOL-MYERS SQUIBB COMPANY-BMS-2019-035208

PATIENT
  Age: 56 Year
  Sex: Female

DRUGS (1)
  1. ELIQUIS [Suspect]
     Active Substance: APIXABAN
     Indication: EMBOLISM VENOUS
     Dosage: 5 MILLIGRAM, BID
     Route: 048

REACTIONS (3)
  - Colitis ischaemic [Fatal]
  - Cerebral haemorrhage [Recovered/Resolved with Sequelae]
  - Cardiac hypertrophy [Unknown]

NARRATIVE: CASE EVENT DATE: 20180314
